FAERS Safety Report 6208916-0 (Version None)
Quarter: 2009Q2

REPORT INFORMATION
  Report Type: 
  Country: None (occurrence: None)
  Receive Date: 20090529
  Receipt Date: 20090526
  Transmission Date: 20091009
  Serious: Yes (Hospitalization)
  Sender: FDA-Public Use
  Company Number: R0003788A

PATIENT
  Age: 82 Year
  Sex: Female

DRUGS (5)
  1. BLINDED VACCINE [Suspect]
     Route: 030
     Dates: start: 20081020, end: 20081020
  2. TRIAMTERENE AND HYDROCHLOROTHIAZIDE [Suspect]
     Indication: HYPERTENSION
     Dosage: 1TAB PER DAY
     Route: 048
     Dates: start: 19850101, end: 20090406
  3. GABAPENTIN [Concomitant]
     Indication: DIURETIC THERAPY
     Dosage: 100MG PER DAY
     Route: 048
     Dates: start: 19900101
  4. PREMARIN [Concomitant]
     Indication: HORMONE REPLACEMENT THERAPY
     Dosage: .625MG PER DAY
     Route: 048
     Dates: start: 19900101
  5. ALEVE [Concomitant]
     Dosage: 220MG PER DAY
     Route: 048
     Dates: start: 19800101

REACTIONS (1)
  - SICK SINUS SYNDROME [None]
